FAERS Safety Report 5853092-7 (Version None)
Quarter: 2008Q3

REPORT INFORMATION
  Report Type: 
  Country: None (occurrence: None)
  Receive Date: 20080821
  Receipt Date: 20080811
  Transmission Date: 20090109
  Serious: Yes (Other)
  Sender: FDA-Public Use
  Company Number: DE-GENENTECH-266573

PATIENT
  Age: 92 Year
  Sex: Male

DRUGS (2)
  1. MABTHERA [Suspect]
     Indication: NON-HODGKIN'S LYMPHOMA
     Dosage: UNK
     Dates: end: 20080805
  2. SUSPECTED DRUG [Suspect]
     Indication: BASAL CELL CARCINOMA

REACTIONS (1)
  - BASAL CELL CARCINOMA [None]
